FAERS Safety Report 9408378 (Version 1)
Quarter: 2013Q3

REPORT INFORMATION
  Report Type: Spontaneous
  Country: FR (occurrence: None)
  Receive Date: 20130716
  Receipt Date: 20130716
  Transmission Date: 20140515
  Serious: Yes (Hospitalization)
  Sender: FDA-Public Use
  Company Number: 1790641

PATIENT
  Age: 66 Year
  Sex: Female

DRUGS (7)
  1. (CARBOPLATIN) [Suspect]
     Indication: METASTATIC BRONCHIAL CARCINOMA
     Route: 041
     Dates: start: 20130416, end: 20130513
  2. PEMETREXED [Suspect]
     Indication: METASTATIC BRONCHIAL CARCINOMA
     Route: 041
     Dates: start: 20130326, end: 20130513
  3. PERINDOPRIL [Concomitant]
  4. (CALCIUM W/COLECALIFEROL) [Concomitant]
  5. (RALOXIFENE) [Concomitant]
  6. (LEVOTHYROXINE) [Concomitant]
  7. (CISPLATINE) [Concomitant]

REACTIONS (2)
  - Pancytopenia [None]
  - Blood creatinine increased [None]
